FAERS Safety Report 23968750 (Version 1)
Quarter: 2024Q2

REPORT INFORMATION
  Report Type: Report from Study
  Country: CA (occurrence: CA)
  Receive Date: 20240612
  Receipt Date: 20240612
  Transmission Date: 20240716
  Serious: Yes (Hospitalization, Other)
  Sender: FDA-Public Use
  Company Number: CA-BIOVITRUM-2023-CA-015735

PATIENT

DRUGS (3)
  1. PEGCETACOPLAN [Suspect]
     Active Substance: PEGCETACOPLAN
     Indication: Paroxysmal nocturnal haemoglobinuria
     Dosage: 1080 MG, 2 TIMES A WEEK
     Route: 058
     Dates: start: 20231005
  2. PEGCETACOPLAN [Suspect]
     Active Substance: PEGCETACOPLAN
     Dosage: CHANGED TO EVERY 3 DAYS DOSING (ON 31-JAN-2024)
     Route: 058
     Dates: start: 20240131
  3. FOLIC ACID [Concomitant]
     Active Substance: FOLIC ACID
     Indication: Product used for unknown indication
     Dosage: PATIENT TAKES EVERY NOW AND THEN

REACTIONS (6)
  - Food poisoning [Recovering/Resolving]
  - Paroxysmal nocturnal haemoglobinuria [Recovering/Resolving]
  - Condition aggravated [Recovering/Resolving]
  - Incorrect product administration duration [Unknown]
  - Blood urine present [Recovered/Resolved]
  - Drug ineffective [Unknown]
